FAERS Safety Report 5714176-7 (Version None)
Quarter: 2008Q2

REPORT INFORMATION
  Report Type: 
  Country: None (occurrence: None)
  Receive Date: 20080423
  Receipt Date: 20070809
  Transmission Date: 20081010
  Serious: No
  Sender: FDA-Public Use
  Company Number: US-KINGPHARMUSA00001-K200701008

PATIENT

DRUGS (6)
  1. SKELAXIN [Suspect]
     Indication: THORACIC OUTLET SYNDROME
     Dosage: 800 MG, TID
     Route: 048
     Dates: start: 20070723
  2. WOMEN'S MULTI [Concomitant]
  3. CHEST CONGESTION RELIEF-EXPECTORANT [Concomitant]
     Dosage: UNK, UNK
  4. ORTHO CYCLEN-21 [Concomitant]
  5. LAMICTAL [Concomitant]
     Dosage: 100 MG, QD
  6. ZANTAC [Concomitant]
     Dosage: 300 MG, BID
     Route: 048

REACTIONS (2)
  - ECCHYMOSIS [None]
  - PRURITUS [None]
